FAERS Safety Report 20427790 (Version 1)
Quarter: 2022Q1

REPORT INFORMATION
  Report Type: Other
  Country: US (occurrence: None)
  Receive Date: 20220204
  Receipt Date: 20220204
  Transmission Date: 20220423
  Serious: Yes (Hospitalization)
  Sender: FDA-Public Use
  Company Number: US-ROCHE-3013278

PATIENT
  Age: 58 Year
  Sex: Male
  Weight: 77.180 kg

DRUGS (7)
  1. OCREVUS [Suspect]
     Active Substance: OCRELIZUMAB
     Indication: Primary progressive multiple sclerosis
     Dosage: HALF-DOSES
     Route: 042
     Dates: start: 20211217, end: 20220103
  2. OCREVUS [Suspect]
     Active Substance: OCRELIZUMAB
     Dosage: WILL START FULL DOSE ON 17-JUN-2022 ;ONGOING: YES
     Route: 042
  3. OXYBUTYNIN [Concomitant]
     Active Substance: OXYBUTYNIN
  4. VITAMIN D3 [Concomitant]
     Active Substance: CHOLECALCIFEROL
  5. POTASSIUM [Concomitant]
     Active Substance: POTASSIUM
  6. CALCIUM ANTACID [Concomitant]
     Active Substance: CALCIUM CARBONATE
  7. IBUDILAST [Concomitant]
     Active Substance: IBUDILAST

REACTIONS (1)
  - COVID-19 [Recovering/Resolving]

NARRATIVE: CASE EVENT DATE: 20220122
